FAERS Safety Report 4375239-4 (Version None)
Quarter: 2004Q2

REPORT INFORMATION
  Report Type: 
  Country: None (occurrence: None)
  Receive Date: 20040604
  Receipt Date: 20040525
  Transmission Date: 20050107
  Serious: Yes (Death, Life-Threatening, Hospitalization, Disabling, Other)
  Sender: FDA-Public Use
  Company Number: 001-0981-M0001130

PATIENT
  Age: 46 Year
  Sex: Male
  Weight: 79.1 kg

DRUGS (22)
  1. ATORVASTATIN (ATORVASTATIN) [Suspect]
     Indication: PROPHYLAXIS
     Dosage: 10 MG (DAILY), ORAL
     Route: 048
     Dates: start: 19971121, end: 20000219
  2. METFORMIN HCL [Concomitant]
  3. LOPERAMIDE HYDROCHLORIDE [Concomitant]
  4. GLIPIZIDE [Concomitant]
  5. ASCORBIC ACID [Concomitant]
  6. MULTIVITAMIN S(ERGOCALCIFEROL, ASCORBIC ACID, FOLIC ACID, THIAMINE HYD [Concomitant]
  7. METHYLPREDNISOLONE [Concomitant]
  8. EPOETIN ALFA (EPOETIN ALFA) [Concomitant]
  9. ALL OTHER THERAPEUTIC PRODUCTS (ALL OTHER THERAPEUTIC PRODUCTS) [Concomitant]
  10. FERROUS SULFTE (FERROUS SULFATE) [Concomitant]
  11. CLONIDINE [Concomitant]
  12. BACTRIM [Concomitant]
  13. SIROLIMUS (SIROLIMUS) [Concomitant]
  14. DAPSONE [Concomitant]
  15. SODIUM BICARBONATE IN PLASTIC CONTAINER [Concomitant]
  16. LANSOPRAZOLE [Concomitant]
  17. INSULIN [Concomitant]
  18. DILTIAZEM [Concomitant]
  19. MAALOX (MAGNESIUM HYDROXIDE, ALUMINIUM HYDROXIDE GELD) [Concomitant]
  20. SUCRALFATE (SICRALFATE) [Concomitant]
  21. ISOPHANE INSULIN [Concomitant]
  22. TACROLIMUS (TACROLIMUIS) [Concomitant]

REACTIONS (61)
  - ABDOMINAL DISTENSION [None]
  - ACTIVATED PARTIAL THROMBOPLASTIN TIME PROLONGED [None]
  - ALANINE AMINOTRANSFERASE INCREASED [None]
  - AMMONIA INCREASED [None]
  - ANOREXIA [None]
  - ARTHROPATHY [None]
  - ASPARTATE AMINOTRANSFERASE INCREASED [None]
  - BILIARY TRACT DISORDER [None]
  - BILIRUBIN CONJUGATED INCREASED [None]
  - BLOOD ALKALINE PHOSPHATASE INCREASED [None]
  - BLOOD BICARBONATE DECREASED [None]
  - BLOOD BILIRUBIN INCREASED [None]
  - BLOOD CHLORIDE DECREASED [None]
  - BLOOD CREATINE PHOSPHOKINASE MB INCREASED [None]
  - BLOOD LACTATE DEHYDROGENASE INCREASED [None]
  - BLOOD MAGNESIUM INCREASED [None]
  - BLOOD POTASSIUM DECREASED [None]
  - BLOOD PRESSURE INADEQUATELY CONTROLLED [None]
  - BLOOD SODIUM DECREASED [None]
  - BLOODY DISCHARGE [None]
  - CATARACT [None]
  - COAGULOPATHY [None]
  - CRACKLES LUNG [None]
  - DEHYDRATION [None]
  - DIABETES MELLITUS INADEQUATE CONTROL [None]
  - DIALYSIS [None]
  - DIARRHOEA [None]
  - DISORIENTATION [None]
  - EMOTIONAL DISORDER [None]
  - EYE HAEMORRHAGE [None]
  - FEELING ABNORMAL [None]
  - GAMMA-GLUTAMYLTRANSFERASE INCREASED [None]
  - GASTROINTESTINAL HAEMORRHAGE [None]
  - HAEMATOCRIT DECREASED [None]
  - HAEMOGLOBIN DECREASED [None]
  - HEPATIC ENCEPHALOPATHY [None]
  - HEPATITIS A VIRUS [None]
  - HEPATITIS FULMINANT [None]
  - HEPATORENAL SYNDROME [None]
  - HYPERTENSION [None]
  - INTERNATIONAL NORMALISED RATIO DECREASED [None]
  - INTERNATIONAL NORMALISED RATIO INCREASED [None]
  - INTRA-ABDOMINAL HAEMORRHAGE [None]
  - LIPASE INCREASED [None]
  - LIVER TRANSPLANT [None]
  - LIVER TRANSPLANT REJECTION [None]
  - MALNUTRITION [None]
  - PANCREATITIS [None]
  - PAROTID GLAND ENLARGEMENT [None]
  - PITTING OEDEMA [None]
  - POST PROCEDURAL COMPLICATION [None]
  - POST PROCEDURAL HAEMORRHAGE [None]
  - PROTEIN URINE PRESENT [None]
  - PROTHROMBIN TIME PROLONGED [None]
  - PYELONEPHRITIS [None]
  - RENAL FAILURE ACUTE [None]
  - RESPIRATORY DISORDER [None]
  - TREATMENT NONCOMPLIANCE [None]
  - URINARY TRACT INFECTION STAPHYLOCOCCAL [None]
  - WEIGHT DECREASED [None]
  - WHITE BLOOD CELL COUNT INCREASED [None]
